FAERS Safety Report 16827782 (Version 1)
Quarter: 2019Q3

REPORT INFORMATION
  Report Type: Spontaneous
  Country: DE (occurrence: DE)
  Receive Date: 20190919
  Receipt Date: 20190919
  Transmission Date: 20191005
  Serious: Yes (Hospitalization, Other)
  Sender: FDA-Public Use
  Company Number: DE-HIKMA PHARMACEUTICALS USA INC.-DE-H14001-19-47023

PATIENT
  Age: 62 Year
  Sex: Female
  Weight: 75 kg

DRUGS (19)
  1. VALSARTAN. [Concomitant]
     Active Substance: VALSARTAN
     Route: 048
  2. PACLITAXEL. [Concomitant]
     Active Substance: PACLITAXEL
     Dosage: EINMALIG
     Route: 042
  3. PACLITAXEL. [Concomitant]
     Active Substance: PACLITAXEL
     Route: 042
  4. DEXAMETHASON [Concomitant]
     Active Substance: DEXAMETHASONE
     Indication: PREMEDICATION
     Dosage: PER CYCLE
     Route: 048
     Dates: start: 20131210, end: 20140407
  5. INNOHEP [Concomitant]
     Active Substance: TINZAPARIN SODIUM
     Indication: VENOUS THROMBOSIS
     Dosage: ()
     Route: 058
     Dates: start: 20140109, end: 20140407
  6. RANITIDIN [Concomitant]
     Active Substance: RANITIDINE HYDROCHLORIDE
     Indication: PREMEDICATION
     Dosage: PER CYCLE
     Route: 042
     Dates: start: 20131211, end: 20140407
  7. L-THYROXIN [Concomitant]
     Active Substance: LEVOTHYROXINE SODIUM
     Indication: HYPOTHYROIDISM
     Dosage: ()
     Route: 048
  8. XELODA [Suspect]
     Active Substance: CAPECITABINE
     Indication: BREAST CANCER
     Dosage: ()
     Route: 048
     Dates: start: 20131120, end: 20131203
  9. PACLITAXEL. [Concomitant]
     Active Substance: PACLITAXEL
     Dosage: MOST RECENT DOSE ON 20/FEB/2014.
     Route: 042
     Dates: start: 20131211, end: 20140220
  10. AVASTIN [Suspect]
     Active Substance: BEVACIZUMAB
     Indication: BREAST CANCER
     Dosage: DAILY DOSE: 750 MG MILLIGRAM(S) EVERY 2 WEEK
     Route: 042
     Dates: start: 20131008, end: 20131008
  11. XELODA [Suspect]
     Active Substance: CAPECITABINE
     Dosage: DAILY DOSE: 750 MG MILLGRAM(S) EVERY 2 WEEKS
     Route: 042
     Dates: start: 20131008, end: 20131021
  12. XELODA [Suspect]
     Active Substance: CAPECITABINE
     Route: 048
     Dates: start: 20131101, end: 20131114
  13. DEXAMETHASON [Concomitant]
     Active Substance: DEXAMETHASONE
     Dosage: DAILY DOSE: 16 MG MILLIGRAM(S) EVERY 2 WEEK
     Route: 042
     Dates: start: 20131211, end: 20140407
  14. AVASTIN [Suspect]
     Active Substance: BEVACIZUMAB
     Dosage: DAILY DOSE: 750 MG MILLIGRAM(S) EVERY 2 WEEK
     Route: 042
     Dates: start: 20131211, end: 20131211
  15. VALSARTAN. [Concomitant]
     Active Substance: VALSARTAN
     Indication: PREMEDICATION
     Dosage: ()
     Route: 048
     Dates: start: 20131112, end: 20140407
  16. PACLITAXEL. [Concomitant]
     Active Substance: PACLITAXEL
     Indication: BREAST CANCER
     Route: 042
  17. ALOXI [Concomitant]
     Active Substance: PALONOSETRON HYDROCHLORIDE
     Indication: PREMEDICATION
     Dosage: PER CYCLE
     Route: 042
     Dates: start: 20131211, end: 20140407
  18. VINORELBINE [Suspect]
     Active Substance: VINORELBINE TARTRATE
     Indication: BREAST CANCER
     Route: 042
  19. FENISTIL [Concomitant]
     Active Substance: DIMETHINDENE
     Indication: PREMEDICATION
     Dosage: PER CYCLE
     Route: 042
     Dates: start: 20131211, end: 20140407

REACTIONS (4)
  - Acute polyneuropathy [Not Recovered/Not Resolved]
  - Metastases to liver [Not Recovered/Not Resolved]
  - Balance disorder [Recovered/Resolved]
  - General physical health deterioration [Recovered/Resolved]

NARRATIVE: CASE EVENT DATE: 20131218
